FAERS Safety Report 21023837 (Version 1)
Quarter: 2022Q2

REPORT INFORMATION
  Report Type: Spontaneous
  Country: US (occurrence: None)
  Receive Date: 20220629
  Receipt Date: 20220629
  Transmission Date: 20220721
  Serious: Yes (Other)
  Sender: FDA-Public Use
  Company Number: None

PATIENT
  Sex: Female

DRUGS (1)
  1. HUMIRA [Suspect]
     Active Substance: ADALIMUMAB
     Indication: Rheumatoid arthritis
     Dosage: 40MG/0.4ML? INJECT 40 MG UNDER THE SKIN (SUBCUTANEOUS INJECTION) EVERY OTHER WEEK?
     Route: 058
     Dates: start: 20220608

REACTIONS (1)
  - Surgery [None]
